FAERS Safety Report 4880336-0 (Version None)
Quarter: 2006Q1

REPORT INFORMATION
  Report Type: 
  Country: None (occurrence: None)
  Receive Date: 20060111
  Receipt Date: 20051219
  Transmission Date: 20060701
  Serious: Yes (Other)
  Sender: FDA-Public Use
  Company Number: 2005173047

PATIENT
  Age: 59 Year
  Sex: Male

DRUGS (1)
  1. BEXTRA [Suspect]
     Indication: ILL-DEFINED DISORDER
     Dates: start: 20030101

REACTIONS (1)
  - CORONARY ARTERIAL STENT INSERTION [None]
